FAERS Safety Report 4846550-5 (Version None)
Quarter: 2005Q4

REPORT INFORMATION
  Report Type: 
  Country: None (occurrence: None)
  Receive Date: 20051206
  Receipt Date: 20050711
  Transmission Date: 20060501
  Serious: Yes (Hospitalization)
  Sender: FDA-Public Use
  Company Number: FR-BOEHRINGER INGELHEIM PHARMACEUTICALS, INC.-2005-FF-00505FF

PATIENT
  Sex: Male
  Weight: 65 kg

DRUGS (6)
  1. TIPRANAVIR + RITONAVIR CO-ADMIN [Suspect]
     Indication: HIV INFECTION
     Dosage: TPV/RTV: 500/200 MG B.I.D.
     Route: 048
     Dates: start: 20050208
  2. ZIAGEN [Concomitant]
     Indication: HIV INFECTION
     Route: 048
  3. FUZEON [Concomitant]
     Indication: HIV INFECTION
     Route: 058
  4. DEXAMBUTOL [Concomitant]
     Indication: ATYPICAL MYCOBACTERIAL INFECTION
     Route: 048
  5. CIFLOX [Concomitant]
     Indication: ATYPICAL MYCOBACTERIAL INFECTION
     Route: 048
  6. ZECLAR [Concomitant]
     Indication: ATYPICAL MYCOBACTERIAL INFECTION
     Route: 048

REACTIONS (1)
  - LEISHMANIASIS [None]
